FAERS Safety Report 10403344 (Version 1)
Quarter: 2014Q3

REPORT INFORMATION
  Report Type: Spontaneous
  Country: US (occurrence: None)
  Receive Date: 20140820
  Receipt Date: 20140820
  Transmission Date: 20150326
  Serious: No
  Sender: FDA-Public Use
  Company Number: None

PATIENT
  Age: 39 Year
  Sex: Male
  Weight: 86.18 kg

DRUGS (4)
  1. KEFLEX [Suspect]
     Active Substance: CEPHALEXIN
     Indication: ARTHROPOD BITE
     Dosage: 250 MG #30 CAPSULE ORAL EVERY 6 HOURS BY MOUTH
     Route: 048
     Dates: start: 20140801, end: 20140801
  2. MUPIROCIN CREAM(BACTROBAN CREAM) [Concomitant]
  3. SULFAMETHOXAZOLE/TRIMETHOPRIM(BACTRIM DS TABLET) [Concomitant]
  4. BENDARYL [Concomitant]

REACTIONS (1)
  - Swelling face [None]

NARRATIVE: CASE EVENT DATE: 20140801
